FAERS Safety Report 19056531 (Version 1)
Quarter: 2021Q1

REPORT INFORMATION
  Report Type: Spontaneous
  Country: GB (occurrence: GB)
  Receive Date: 20210325
  Receipt Date: 20210325
  Transmission Date: 20210420
  Serious: Yes (Other)
  Sender: FDA-Public Use
  Company Number: GB-TEVA-2021-GB-1890024

PATIENT
  Age: 48 Year
  Sex: Male

DRUGS (3)
  1. DARUNAVIR [Concomitant]
     Active Substance: DARUNAVIR
     Indication: ILL-DEFINED DISORDER
  2. EMTRICITABINE AND TENOFOVIR [Suspect]
     Active Substance: EMTRICITABINE\TENOFOVIR
     Indication: ILL-DEFINED DISORDER
     Dosage: 200MG/245 MG
     Route: 048
     Dates: start: 202005
  3. RITONAVIR. [Concomitant]
     Active Substance: RITONAVIR
     Indication: ILL-DEFINED DISORDER

REACTIONS (4)
  - Kidney infection [Unknown]
  - Renal pain [Unknown]
  - Nightmare [Unknown]
  - Dizziness [Unknown]
